FAERS Safety Report 6285903-8 (Version None)
Quarter: 2009Q3

REPORT INFORMATION
  Report Type: 
  Country: None (occurrence: None)
  Receive Date: 20090727
  Receipt Date: 20090710
  Transmission Date: 20100115
  Serious: Yes (Hospitalization)
  Sender: FDA-Public Use
  Company Number: 2009198941-NL

PATIENT
  Age: 24 Year
  Sex: Female

DRUGS (1)
  1. NUVARING [Suspect]
     Indication: CONTRACEPTION
     Dosage: DF;
     Dates: start: 20090401

REACTIONS (7)
  - ABDOMINAL PAIN LOWER [None]
  - BODY TEMPERATURE INCREASED [None]
  - DIZZINESS [None]
  - FUNGAL INFECTION [None]
  - GASTRITIS [None]
  - NAUSEA [None]
  - VAGINAL HAEMORRHAGE [None]
